FAERS Safety Report 25038862 (Version 2)
Quarter: 2025Q1

REPORT INFORMATION
  Report Type: Report from Study
  Country: US (occurrence: US)
  Receive Date: 20250305
  Receipt Date: 20250317
  Transmission Date: 20250408
  Serious: Yes (Hospitalization, Other)
  Sender: ABBVIE
  Company Number: US-ABBVIE-6152716

PATIENT
  Age: 34 Year
  Sex: Female
  Weight: 58.966 kg

DRUGS (14)
  1. HUMIRA [Suspect]
     Active Substance: ADALIMUMAB
     Indication: Crohn^s disease
     Route: 058
     Dates: start: 20200327
  2. INVEGA [Concomitant]
     Active Substance: PALIPERIDONE
     Indication: Depression
     Dosage: 3 MILLIGRAM
     Dates: start: 2000
  3. Tranexamic acide [Concomitant]
     Indication: Heavy menstrual bleeding
  4. VITAMIN C [Concomitant]
     Active Substance: ASCORBIC ACID
     Indication: Vitamin supplementation
  5. HYDROXYZINE PAMOATE [Concomitant]
     Active Substance: HYDROXYZINE PAMOATE
     Indication: Product used for unknown indication
  6. CODEINE [Concomitant]
     Active Substance: CODEINE
     Indication: Pain
  7. TYLENOL [Concomitant]
     Active Substance: ACETAMINOPHEN
     Indication: Pain
  8. CALTRATE [Concomitant]
     Active Substance: CALCIUM CARBONATE
     Indication: Product used for unknown indication
  9. MELATONIN [Concomitant]
     Active Substance: MELATONIN
     Indication: Insomnia
  10. POLYETHYLENE GLYCOL [Concomitant]
     Active Substance: POLYETHYLENE GLYCOL
     Indication: Constipation
  11. NICOTINE [Concomitant]
     Active Substance: NICOTINE
     Indication: Product used for unknown indication
  12. CHLORDIAZEPOXIDE [Concomitant]
     Active Substance: CHLORDIAZEPOXIDE
     Indication: Product used for unknown indication
  13. ENTOCORT [Concomitant]
     Active Substance: BUDESONIDE
     Indication: Product used for unknown indication
  14. ONDANSETRON [Concomitant]
     Active Substance: ONDANSETRON
     Indication: Nausea

REACTIONS (43)
  - Muscle spasms [Unknown]
  - Constipation [Recovered/Resolved]
  - Abdominal distension [Unknown]
  - Post procedural contusion [Recovered/Resolved]
  - Pain [Not Recovered/Not Resolved]
  - Nausea [Recovered/Resolved]
  - Dizziness [Not Recovered/Not Resolved]
  - Hypertension [Recovering/Resolving]
  - Blood glucose abnormal [Recovered/Resolved]
  - Pulmonary oedema [Recovering/Resolving]
  - Blood pressure increased [Recovered/Resolved]
  - Diabetic retinal oedema [Not Recovered/Not Resolved]
  - Abdominal distension [Recovered/Resolved]
  - Sinusitis [Recovered/Resolved]
  - Immunodeficiency [Not Recovered/Not Resolved]
  - Arthralgia [Not Recovered/Not Resolved]
  - Nocturnal dyspnoea [Recovered/Resolved]
  - Chest pain [Not Recovered/Not Resolved]
  - Gastrointestinal disorder [Recovering/Resolving]
  - Headache [Recovered/Resolved]
  - Astigmatism [Not Recovered/Not Resolved]
  - Fall [Recovered/Resolved]
  - Aphonia [Not Recovered/Not Resolved]
  - Eye disorder [Not Recovered/Not Resolved]
  - Dizziness [Not Recovered/Not Resolved]
  - Malaise [Not Recovered/Not Resolved]
  - Fatigue [Not Recovered/Not Resolved]
  - Insomnia [Recovered/Resolved]
  - Non-cardiac chest pain [Recovered/Resolved]
  - Abdominal pain upper [Recovered/Resolved]
  - Blood glucose abnormal [Recovering/Resolving]
  - Pulmonary congestion [Not Recovered/Not Resolved]
  - Anal incontinence [Recovered/Resolved]
  - Gingival bleeding [Recovering/Resolving]
  - Dehydration [Recovered/Resolved]
  - Myopia [Not Recovered/Not Resolved]
  - Heart rate increased [Recovered/Resolved]
  - Dyspnoea [Recovered/Resolved]
  - Regurgitation [Recovering/Resolving]
  - Retinal neovascularisation [Not Recovered/Not Resolved]
  - Joint swelling [Not Recovered/Not Resolved]
  - Loss of consciousness [Recovered/Resolved]
  - Terminal ileitis [Recovering/Resolving]

NARRATIVE: CASE EVENT DATE: 20200101
